FAERS Safety Report 8770753 (Version 2)
Quarter: 2012Q4

REPORT INFORMATION
  Report Type: 
  Country: DE (occurrence: DE)
  Receive Date: 20120906
  Receipt Date: 20121127
  Transmission Date: 20130627
  Serious: Yes (Life-Threatening, Hospitalization, Other)
  Sender: FDA-Public Use
  Company Number: DE-ALEXION-A201201636

PATIENT
  Sex: Female

DRUGS (3)
  1. SOLIRIS 300MG [Suspect]
     Indication: PAROXYSMAL NOCTURNAL HAEMOGLOBINURIA
     Dosage: UNK
     Route: 042
     Dates: start: 200712
  2. SOLIRIS 300MG [Suspect]
     Dosage: 900 mg, q2w
     Route: 042
     Dates: start: 2008
  3. AZITHROMYCIN [Concomitant]
     Indication: URINARY TRACT INFECTION
     Dosage: UNK
     Dates: start: 20120613, end: 20120617

REACTIONS (4)
  - Portal vein thrombosis [Unknown]
  - Splenic vein thrombosis [Recovered/Resolved with Sequelae]
  - Pulmonary embolism [Recovered/Resolved with Sequelae]
  - Pneumonia [Recovered/Resolved with Sequelae]
